FAERS Safety Report 10712420 (Version 1)
Quarter: 2015Q1

REPORT INFORMATION
  Report Type: Report from Study
  Country: FR (occurrence: FR)
  Receive Date: 20150115
  Receipt Date: 20150115
  Transmission Date: 20150721
  Serious: Yes (Hospitalization)
  Sender: FDA-Public Use
  Company Number: FR-ROCHE-1162185

PATIENT
  Age: 66 Year
  Sex: Female

DRUGS (3)
  1. RITUXIMAB [Suspect]
     Active Substance: RITUXIMAB
     Dosage: D15
     Route: 042
     Dates: start: 20070202
  2. RITUXIMAB [Suspect]
     Active Substance: RITUXIMAB
     Indication: RHEUMATOID ARTHRITIS
     Dosage: D1
     Route: 042
     Dates: start: 20070118
  3. CORTANCYL [Concomitant]
     Active Substance: PREDNISONE
     Route: 065

REACTIONS (17)
  - Pleural effusion [Recovered/Resolved]
  - Aortic valve incompetence [Not Recovered/Not Resolved]
  - Nodule [Not Recovered/Not Resolved]
  - Mycobacterium chelonae infection [Not Recovered/Not Resolved]
  - Skin ulcer [Unknown]
  - Hepatitis cholestatic [Unknown]
  - Dyspnoea [Unknown]
  - Oedema [Not Recovered/Not Resolved]
  - Urinary tract infection [Unknown]
  - Lung infection [Recovered/Resolved]
  - Mitral valve incompetence [Not Recovered/Not Resolved]
  - Sleep disorder [Not Recovered/Not Resolved]
  - Lymphopenia [Not Recovered/Not Resolved]
  - Carpal tunnel syndrome [Unknown]
  - Peripheral venous disease [Unknown]
  - Urinary tract infection bacterial [Recovered/Resolved]
  - Upper respiratory tract infection [Unknown]

NARRATIVE: CASE EVENT DATE: 2009
